FAERS Safety Report 19129943 (Version 4)
Quarter: 2021Q2

REPORT INFORMATION
  Report Type: Report from Study
  Country: US (occurrence: US)
  Receive Date: 20210413
  Receipt Date: 20210611
  Transmission Date: 20210717
  Serious: Yes (Hospitalization)
  Sender: FDA-Public Use
  Company Number: US-SEATTLE GENETICS-2021SGN01171

PATIENT
  Age: 45 Year
  Sex: Female

DRUGS (2)
  1. XELODA [Suspect]
     Active Substance: CAPECITABINE
     Indication: PRODUCT USED FOR UNKNOWN INDICATION
  2. TUCATINIB [Suspect]
     Active Substance: TUCATINIB
     Indication: BREAST CANCER FEMALE

REACTIONS (7)
  - Laboratory test abnormal [Unknown]
  - Blood potassium decreased [Unknown]
  - Brain tumour operation [Unknown]
  - Platelet count decreased [Unknown]
  - Diarrhoea [Unknown]
  - Product dose omission issue [Unknown]
  - Hospice care [Unknown]

NARRATIVE: CASE EVENT DATE: 20210309
